FAERS Safety Report 12462749 (Version 1)
Quarter: 2016Q2

REPORT INFORMATION
  Report Type: Spontaneous
  Country: US (occurrence: US)
  Receive Date: 20160614
  Receipt Date: 20160614
  Transmission Date: 20160815
  Serious: No
  Sender: FDA-Public Use
  Company Number: US-LUPIN PHARMACEUTICALS INC.-E2B_00004930

PATIENT
  Age: 5 Year
  Sex: Male

DRUGS (2)
  1. CEFADROXIL FOR ORAL SUSPENSION USP 500MG/5ML [Suspect]
     Active Substance: CEFADROXIL
     Indication: PHARYNGITIS STREPTOCOCCAL
     Route: 048
     Dates: start: 20160215
  2. INSULIN [Concomitant]
     Active Substance: INSULIN NOS
     Indication: TYPE 1 DIABETES MELLITUS
     Route: 065

REACTIONS (3)
  - Abdominal discomfort [Recovered/Resolved]
  - Blood glucose decreased [Unknown]
  - Vomiting [Recovered/Resolved]

NARRATIVE: CASE EVENT DATE: 20160216
